FAERS Safety Report 4438401-8 (Version None)
Quarter: 2004Q3

REPORT INFORMATION
  Report Type: 
  Country: None (occurrence: None)
  Receive Date: 20040831
  Receipt Date: 20040630
  Transmission Date: 20050211
  Serious: Yes (Death, Life-Threatening)
  Sender: FDA-Public Use
  Company Number: PHBS2004JP08735

PATIENT
  Age: 75 Year
  Sex: Male
  Weight: 40 kg

DRUGS (6)
  1. TEGRETOL [Suspect]
     Indication: EPILEPSY
     Dosage: 200 MG, BID
     Route: 048
     Dates: start: 20040525, end: 20040630
  2. MYSTAN [Suspect]
     Indication: EPILEPSY
     Dosage: 10 MG/DAY
     Route: 048
     Dates: start: 20040609, end: 20040706
  3. DEPAKENE [Concomitant]
     Indication: EPILEPSY
     Dosage: 400 MG/DAY
     Route: 048
     Dates: end: 20040604
  4. TANNALBIN [Concomitant]
     Indication: DIARRHOEA
     Dosage: 1 G/DAY
     Route: 048
     Dates: start: 20040625, end: 20040626
  5. LASIX [Concomitant]
     Indication: OEDEMA
     Dosage: 10 MG/DAY
     Route: 042
     Dates: start: 20040517, end: 20040614
  6. CEFAZOLIN SODIUM [Concomitant]
     Indication: INFLAMMATION
     Dosage: 2 G/DAY
     Route: 042
     Dates: start: 20040609, end: 20040621

REACTIONS (8)
  - ALANINE AMINOTRANSFERASE INCREASED [None]
  - ASPARTATE AMINOTRANSFERASE INCREASED [None]
  - BLOOD ALKALINE PHOSPHATASE INCREASED [None]
  - BLOOD LACTATE DEHYDROGENASE INCREASED [None]
  - CARDIO-RESPIRATORY ARREST [None]
  - GAMMA-GLUTAMYLTRANSFERASE INCREASED [None]
  - HEPATIC FAILURE [None]
  - HEPATIC FUNCTION ABNORMAL [None]
